FAERS Safety Report 9458083 (Version 1)
Quarter: 2013Q3

REPORT INFORMATION
  Report Type: Spontaneous
  Country: GB (occurrence: None)
  Receive Date: 20130812
  Receipt Date: 20130812
  Transmission Date: 20140515
  Serious: Yes (Other)
  Sender: FDA-Public Use
  Company Number: AUR-APL-2013-06451

PATIENT
  Age: 49 Year
  Sex: Female
  Weight: 72 kg

DRUGS (3)
  1. AMOXICILLIN+CLAVULANIC ACID [Suspect]
     Indication: URINARY TRACT INFECTION
     Dosage: 1875 MG (625 MG,  3 IN 1 D),  ORAL
     Route: 048
     Dates: start: 20130624, end: 20130701
  2. ESTRADOT (ESTRADIOL) [Concomitant]
  3. MIRENA (LEVONORGESTREL) [Concomitant]

REACTIONS (1)
  - Vulvovaginal candidiasis [None]
